FAERS Safety Report 18365056 (Version 1)
Quarter: 2020Q4

REPORT INFORMATION
  Report Type: Spontaneous
  Country: US (occurrence: US)
  Receive Date: 20201008
  Receipt Date: 20201008
  Transmission Date: 20210114
  Serious: Yes (Hospitalization)
  Sender: FDA-Public Use
  Company Number: None

PATIENT
  Sex: Male

DRUGS (26)
  1. ESBRIET [Suspect]
     Active Substance: PIRFENIDONE
     Indication: IDIOPATHIC PULMONARY FIBROSIS
     Route: 048
     Dates: start: 20180830
  2. MIRALAX [Concomitant]
     Active Substance: POLYETHYLENE GLYCOL 3350
  3. NAPROXEN. [Concomitant]
     Active Substance: NAPROXEN
  4. ONDANSETRON [Concomitant]
     Active Substance: ONDANSETRON
  5. TIZANIDINE. [Concomitant]
     Active Substance: TIZANIDINE
  6. SUMATRIPTAN. [Concomitant]
     Active Substance: SUMATRIPTAN
  7. FUROSEMIDE. [Concomitant]
     Active Substance: FUROSEMIDE
  8. MULTIVITAMIN [Concomitant]
     Active Substance: VITAMINS
  9. OMEPRAZOLE. [Concomitant]
     Active Substance: OMEPRAZOLE
  10. LOSARTAN POT [Concomitant]
     Active Substance: LOSARTAN POTASSIUM
  11. ZOLPIDEM [Concomitant]
     Active Substance: ZOLPIDEM TARTRATE
  12. ELIQUIS [Concomitant]
     Active Substance: APIXABAN
  13. FLOMAX [Concomitant]
     Active Substance: TAMSULOSIN HYDROCHLORIDE
  14. NITROSTAT [Concomitant]
     Active Substance: NITROGLYCERIN
  15. ATENOLOL. [Concomitant]
     Active Substance: ATENOLOL
  16. VITAMIN D3 [Concomitant]
     Active Substance: CHOLECALCIFEROL
  17. AFRIN [Concomitant]
     Active Substance: OXYMETAZOLINE
  18. ASPIRIN. [Concomitant]
     Active Substance: ASPIRIN
  19. GABAPENTIN. [Concomitant]
     Active Substance: GABAPENTIN
  20. LINZESS [Concomitant]
     Active Substance: LINACLOTIDE
  21. MAGNESIUM [Concomitant]
     Active Substance: MAGNESIUM
  22. COENZYME Q10 [Concomitant]
     Active Substance: DIETARY SUPPLEMENT\UBIDECARENONE
  23. LEVOTHYROXIN [Concomitant]
     Active Substance: LEVOTHYROXINE
  24. OXYCODONE [Concomitant]
     Active Substance: OXYCODONE
  25. PRAVASTATIN. [Concomitant]
     Active Substance: PRAVASTATIN
  26. VITAMIN B50 [Concomitant]

REACTIONS (1)
  - Pneumothorax [None]
